FAERS Safety Report 5926889-2 (Version None)
Quarter: 2008Q4

REPORT INFORMATION
  Report Type: 
  Country: None (occurrence: None)
  Receive Date: 20081022
  Receipt Date: 20081015
  Transmission Date: 20090506
  Serious: Yes (Other)
  Sender: FDA-Public Use
  Company Number: US-ASTRAZENECA-2008UW23036

PATIENT
  Age: 65 Year
  Sex: Male
  Weight: 78 kg

DRUGS (8)
  1. CRESTOR [Suspect]
     Indication: HYPERCHOLESTEROLAEMIA
     Route: 048
     Dates: start: 20080801, end: 20081014
  2. DIOVAN HCT [Concomitant]
     Indication: HYPERTENSION
     Route: 048
  3. ACETYLSALICYLIC ACID SRT [Concomitant]
     Route: 048
  4. AMLODIPINE [Concomitant]
     Indication: HYPERTENSION
  5. LOTENSIN [Concomitant]
     Indication: HYPERTENSION
     Route: 048
     Dates: start: 20080701
  6. CLORTALIDONE [Concomitant]
     Indication: HYPERTENSION
     Route: 048
     Dates: start: 20080701
  7. ATENSINA [Concomitant]
     Indication: HYPERTENSION
     Route: 048
     Dates: start: 20080701
  8. ESPIRONOLACTONA [Concomitant]
     Indication: HYPERTENSION
     Route: 048
     Dates: start: 20080701

REACTIONS (7)
  - ABDOMINAL PAIN UPPER [None]
  - DRY MOUTH [None]
  - DYSGEUSIA [None]
  - FLATULENCE [None]
  - RASH [None]
  - RENAL IMPAIRMENT [None]
  - RENIN INCREASED [None]
